FAERS Safety Report 9019686 (Version 1)
Quarter: 2013Q1

REPORT INFORMATION
  Report Type: Spontaneous
  Country: NL (occurrence: NL)
  Receive Date: 20130118
  Receipt Date: 20130118
  Transmission Date: 20140127
  Serious: Yes (Death)
  Sender: FDA-Public Use
  Company Number: PHHY2013NL004464

PATIENT
  Age: 82 None
  Sex: Male

DRUGS (1)
  1. TOBI [Suspect]

REACTIONS (1)
  - Death [Fatal]
